FAERS Safety Report 5256228-4 (Version None)
Quarter: 2007Q1

REPORT INFORMATION
  Report Type: 
  Country: None (occurrence: None)
  Receive Date: 20070302
  Receipt Date: 20070302
  Transmission Date: 20070707
  Serious: Yes (Other)
  Sender: FDA-Public Use
  Company Number: None

PATIENT
  Sex: Male
  Weight: 96.6162 kg

DRUGS (2)
  1. CEFAZOLIN [Suspect]
     Indication: STAPHYLOCOCCAL INFECTION
     Dosage: 2 GM Q8H IV
     Route: 042
     Dates: start: 20070122, end: 20070124
  2. PIPERACILLIN AND TAZOBACTAM [Suspect]
     Indication: STAPHYLOCOCCAL INFECTION
     Dates: start: 20070113, end: 20070122

REACTIONS (3)
  - DRUG ERUPTION [None]
  - RASH ERYTHEMATOUS [None]
  - URTICARIA [None]
